FAERS Safety Report 9235851 (Version 1)
Quarter: 2013Q2

REPORT INFORMATION
  Report Type: Spontaneous
  Country: JP (occurrence: JP)
  Receive Date: 20130417
  Receipt Date: 20130417
  Transmission Date: 20140414
  Serious: Yes (Other)
  Sender: FDA-Public Use
  Company Number: JP-BAYER-2013-047634

PATIENT
  Age: 84 Year
  Sex: Male

DRUGS (1)
  1. ADALAT [Suspect]
     Route: 048

REACTIONS (1)
  - Cerebral infarction [None]
